FAERS Safety Report 6903750-8 (Version None)
Quarter: 2010Q3

REPORT INFORMATION
  Report Type: 
  Country: None (occurrence: None)
  Receive Date: 20100804
  Receipt Date: 20081130
  Transmission Date: 20110219
  Serious: No
  Sender: FDA-Public Use
  Company Number: US-PFIZER INC-2008101169

PATIENT
  Sex: Female
  Weight: 81.8 kg

DRUGS (8)
  1. LYRICA [Suspect]
     Indication: HERPES ZOSTER
     Dates: start: 20081101, end: 20081101
  2. NEURONTIN [Concomitant]
  3. GLUCOPHAGE [Concomitant]
  4. TOPROL-XL [Concomitant]
  5. GLIPIZIDE [Concomitant]
  6. HYDROCHLOROTHIAZIDE [Concomitant]
  7. RANITIDINE [Concomitant]
  8. DRUG, UNSPECIFIED [Concomitant]

REACTIONS (1)
  - VISION BLURRED [None]
